FAERS Safety Report 7883221-5 (Version None)
Quarter: 2011Q4

REPORT INFORMATION
  Report Type: 
  Country: None (occurrence: None)
  Receive Date: 20111031
  Receipt Date: 20111031
  Transmission Date: 20120403
  Serious: Yes (Other)
  Sender: FDA-Public Use
  Company Number: None

PATIENT
  Sex: Female
  Weight: 61.8 kg

DRUGS (1)
  1. BUPROPION HCL [Suspect]
     Indication: BIPOLAR DISORDER
     Dosage: 300MG. QD PO (03/2003 WELLBUTRIN XL USE BEGAN ; 05/2007 GENERIC BRAND ATTEMPTED)
     Route: 048

REACTIONS (4)
  - PRODUCT SUBSTITUTION ISSUE [None]
  - CONDITION AGGRAVATED [None]
  - GASTROOESOPHAGEAL REFLUX DISEASE [None]
  - CHOKING [None]
